FAERS Safety Report 5245650-8 (Version None)
Quarter: 2007Q1

REPORT INFORMATION
  Report Type: 
  Country: None (occurrence: None)
  Receive Date: 20070216
  Receipt Date: 20070205
  Transmission Date: 20070707
  Serious: Yes (Other)
  Sender: FDA-Public Use
  Company Number: SPV1-2007-00604

PATIENT
  Sex: Male

DRUGS (1)
  1. ADDERALL(AMPHETAMINE ASPARTATE,AMPHETAMINE SULFATE,DEXTROAMPHETAMINE S [Suspect]

REACTIONS (4)
  - DRUG ABUSER [None]
  - INSOMNIA [None]
  - MUSCLE TWITCHING [None]
  - STOMACH DISCOMFORT [None]
